FAERS Safety Report 6033801-7 (Version None)
Quarter: 2009Q1

REPORT INFORMATION
  Report Type: 
  Country: None (occurrence: None)
  Receive Date: 20090112
  Receipt Date: 20090107
  Transmission Date: 20090719
  Serious: Yes (Hospitalization)
  Sender: FDA-Public Use
  Company Number: US-JNJFOC-20090101540

PATIENT
  Sex: Female
  Weight: 107.96 kg

DRUGS (3)
  1. DURAGESIC-100 [Suspect]
     Dosage: DOSE: 100 UG/HR+50 UG/HR
     Route: 062
  2. DURAGESIC-100 [Suspect]
     Indication: FIBROMYALGIA
     Route: 062
  3. PHENERGAN HCL [Concomitant]
     Indication: GASTRIC DISORDER
     Dosage: AS NEEDED
     Route: 048

REACTIONS (7)
  - DEPRESSION [None]
  - GASTROINTESTINAL DISORDER [None]
  - HERNIA [None]
  - HYPERTENSION [None]
  - INSOMNIA [None]
  - MUSCLE SPASMS [None]
  - WRONG TECHNIQUE IN DRUG USAGE PROCESS [None]
